FAERS Safety Report 11741636 (Version 1)
Quarter: 2015Q4

REPORT INFORMATION
  Report Type: Spontaneous
  Country: US (occurrence: None)
  Receive Date: 20151113
  Receipt Date: 20151113
  Transmission Date: 20160304
  Serious: No
  Sender: FDA-Public Use
  Company Number: None

PATIENT
  Age: 24 Year
  Sex: Male

DRUGS (1)
  1. LIALDA [Suspect]
     Active Substance: MESALAMINE
     Indication: COLITIS ULCERATIVE
     Route: 048

REACTIONS (5)
  - Product quality issue [None]
  - Oral discomfort [None]
  - Product odour abnormal [None]
  - Abdominal discomfort [None]
  - Product substitution issue [None]

NARRATIVE: CASE EVENT DATE: 20151031
